FAERS Safety Report 6096784-X (Version None)
Quarter: 2009Q1

REPORT INFORMATION
  Report Type: 
  Country: None (occurrence: None)
  Receive Date: 20090227
  Receipt Date: 20090216
  Transmission Date: 20090719
  Serious: Yes (Hospitalization)
  Sender: FDA-Public Use
  Company Number: FR-PFIZER INC-2009173147

PATIENT

DRUGS (3)
  1. ZYVOXID [Suspect]
     Route: 048
     Dates: start: 20081011, end: 20081020
  2. TRIFLUCAN [Suspect]
     Route: 042
     Dates: start: 20081012, end: 20081016
  3. TIGECYCLINE [Suspect]
     Route: 042
     Dates: start: 20081012, end: 20081019

REACTIONS (1)
  - CONFUSIONAL STATE [None]
